FAERS Safety Report 25606934 (Version 5)
Quarter: 2025Q4

REPORT INFORMATION
  Report Type: Report from Study
  Country: US (occurrence: US)
  Receive Date: 20250725
  Receipt Date: 20251222
  Transmission Date: 20260118
  Serious: No
  Sender: PFIZER
  Company Number: US-PFIZER INC-202500149535

PATIENT
  Age: 10 Year
  Sex: Male
  Weight: 22.27 kg

DRUGS (2)
  1. GENOTROPIN [Suspect]
     Active Substance: SOMATROPIN
     Indication: Growth hormone deficiency
     Dosage: 0.6 MG, 1X/DAY (UNDER SKIN BEFORE BED)
     Dates: start: 20250717
  2. ADDERALL [Concomitant]
     Active Substance: AMPHETAMINE ASPARTATE\AMPHETAMINE SULFATE\DEXTROAMPHETAMINE SACCHARATE\DEXTROAMPHETAMINE SULFATE
     Indication: Attention deficit hyperactivity disorder
     Dosage: UNK

REACTIONS (4)
  - Drug dose omission by device [Unknown]
  - Device use error [Unknown]
  - Device defective [Unknown]
  - Device breakage [Unknown]

NARRATIVE: CASE EVENT DATE: 20250723
